FAERS Safety Report 11828135 (Version 2)
Quarter: 2015Q4

REPORT INFORMATION
  Report Type: Spontaneous
  Country: US (occurrence: US)
  Receive Date: 20151211
  Receipt Date: 20151218
  Transmission Date: 20160305
  Serious: No
  Sender: FDA-Public Use
  Company Number: US-PFIZER INC-2015441784

PATIENT
  Age: 68 Year
  Sex: Male
  Weight: 77 kg

DRUGS (5)
  1. VIAGRA [Suspect]
     Active Substance: SILDENAFIL CITRATE
     Indication: ERECTILE DYSFUNCTION
     Dosage: 2 AND HALF MG
  2. CLOZAPINE. [Concomitant]
     Active Substance: CLOZAPINE
     Indication: SLEEP DISORDER
  3. PERCOCET [Concomitant]
     Active Substance: ACETAMINOPHEN\OXYCODONE HYDROCHLORIDE
     Indication: BACK PAIN
  4. CIALIS [Suspect]
     Active Substance: TADALAFIL
  5. CLOZAPINE. [Concomitant]
     Active Substance: CLOZAPINE
     Indication: ANXIETY

REACTIONS (1)
  - Drug ineffective [Unknown]
